FAERS Safety Report 9693272 (Version 1)
Quarter: 2013Q4

REPORT INFORMATION
  Report Type: Spontaneous
  Country: US (occurrence: US)
  Receive Date: 20131118
  Receipt Date: 20131118
  Transmission Date: 20140711
  Serious: Yes (Other)
  Sender: FDA-Public Use
  Company Number: US-009507513-1311USA005454

PATIENT
  Age: 13 Year
  Sex: Male

DRUGS (1)
  1. SINGULAIR [Suspect]
     Indication: MULTIPLE ALLERGIES
     Route: 048

REACTIONS (7)
  - Abnormal behaviour [Unknown]
  - Blepharospasm [Unknown]
  - Enuresis [Unknown]
  - Insomnia [Unknown]
  - Nightmare [Unknown]
  - Stress [Unknown]
  - Tic [Unknown]
